FAERS Safety Report 7803545-7 (Version None)
Quarter: 2011Q4

REPORT INFORMATION
  Report Type: 
  Country: None (occurrence: None)
  Receive Date: 20111009
  Receipt Date: 20110919
  Transmission Date: 20120403
  Serious: Yes (Other)
  Sender: FDA-Public Use
  Company Number: PHEH2011US03652

PATIENT
  Sex: Male

DRUGS (9)
  1. LORTAB [Concomitant]
     Dosage: 10 MG, PRN
     Route: 048
  2. MULTI-VITAMINS [Concomitant]
     Dosage: UNK UKN, UNK
  3. GILENYA [Suspect]
     Dosage: 0.5 MG, QD
     Route: 048
  4. WARFARIN SODIUM [Concomitant]
     Dosage: 4 MG, QD
     Route: 048
  5. FISH OIL [Concomitant]
     Dosage: UNK UKN, QD
     Route: 048
  6. ZOCOR [Concomitant]
     Dosage: 20 MG, QD
     Route: 048
  7. GILENYA [Suspect]
     Indication: MULTIPLE SCLEROSIS
     Dosage: 0.5 MG, QD
     Route: 048
     Dates: start: 20110902, end: 20110904
  8. CARTIA XT [Concomitant]
     Dosage: 240 MG, BID
     Route: 048
  9. VITA-E [Concomitant]
     Dosage: UNK UKN, QD
     Route: 048

REACTIONS (2)
  - BLOOD PRESSURE DECREASED [None]
  - FATIGUE [None]
